FAERS Safety Report 4394123-3 (Version None)
Quarter: 2004Q3

REPORT INFORMATION
  Report Type: 
  Country: None (occurrence: None)
  Receive Date: 20040708
  Receipt Date: 20040708
  Transmission Date: 20050211
  Serious: No
  Sender: FDA-Public Use
  Company Number: None

PATIENT
  Sex: Male
  Weight: 75.7507 kg

DRUGS (4)
  1. GLEEVEC [Suspect]
     Indication: PROSTATE CANCER
     Dosage: 400 MG BID ORAL
     Route: 048
     Dates: start: 20040420
  2. IBUPROFEN [Concomitant]
  3. METAMUCIL-2 [Concomitant]
  4. CILOXAN [Concomitant]

REACTIONS (1)
  - DYSPNOEA PAROXYSMAL NOCTURNAL [None]
